FAERS Safety Report 15963326 (Version 1)
Quarter: 2019Q1

REPORT INFORMATION
  Report Type: Spontaneous
  Country: KR (occurrence: KR)
  Receive Date: 20190214
  Receipt Date: 20190214
  Transmission Date: 20190417
  Serious: Yes (Life-Threatening)
  Sender: FDA-Public Use
  Company Number: KR-MYLANLABS-2019M1014731

PATIENT
  Age: 46 Year
  Sex: Male
  Weight: 78 kg

DRUGS (3)
  1. NOREPINEPHRINE. [Suspect]
     Active Substance: NOREPINEPHRINE
     Dosage: 19:00 HOURS
     Route: 041
  2. NOREPINEPHRINE. [Suspect]
     Active Substance: NOREPINEPHRINE
     Indication: HYPOTENSION
     Dosage: 17:50 HOURS
     Route: 041
  3. NOREPINEPHRINE. [Suspect]
     Active Substance: NOREPINEPHRINE
     Dosage: 20:00 HOURS
     Route: 041

REACTIONS (1)
  - Drug ineffective [Unknown]
